FAERS Safety Report 9391621 (Version 1)
Quarter: 2013Q3

REPORT INFORMATION
  Report Type: Report from Study
  Country: ZW (occurrence: ZW)
  Receive Date: 20130709
  Receipt Date: 20130709
  Transmission Date: 20140515
  Serious: Yes (Hospitalization, Other)
  Sender: FDA-Public Use
  Company Number: ZW-009507513-1307ZWE001652

PATIENT
  Age: 32 Year
  Sex: Female

DRUGS (5)
  1. RALTEGRAVIR POTASSIUM [Suspect]
     Indication: HIV INFECTION
     Dosage: UNK
     Dates: start: 20100917, end: 20111127
  2. ALUVIA [Suspect]
     Indication: HIV INFECTION
     Dosage: UNK
     Dates: start: 20100917
  3. RIFABUTIN [Suspect]
     Dosage: UNK
     Dates: start: 20100917, end: 20110228
  4. ISONIAZID [Suspect]
     Dosage: UNK
     Dates: start: 20100917, end: 20110228
  5. COTRIMOXAZOLE [Suspect]
     Dosage: UNK
     Dates: start: 20071001

REACTIONS (5)
  - Hepatotoxicity [Recovered/Resolved]
  - Hepatitis B [Recovered/Resolved]
  - Abdominal pain [None]
  - Nausea [None]
  - Diarrhoea [None]
